FAERS Safety Report 9219302 (Version 2)
Quarter: 2013Q2

REPORT INFORMATION
  Report Type: Spontaneous
  Country: US (occurrence: US)
  Receive Date: 20130409
  Receipt Date: 20130412
  Transmission Date: 20140414
  Serious: Yes (Other)
  Sender: FDA-Public Use
  Company Number: US-PFIZER INC-2013108886

PATIENT
  Age: 60 Year
  Sex: Female

DRUGS (6)
  1. NORVASC [Suspect]
     Dosage: 10 MG, 1X/DAY
     Route: 048
  2. TACROLIMUS [Concomitant]
     Dosage: 2 MG, 2X/DAY
     Route: 048
  3. MYCOPHENOLATE MOFETIL [Concomitant]
     Dosage: 500 MG, 2X/DAY
     Route: 048
  4. PREDNISONE [Concomitant]
     Dosage: 5 MG, 1X/DAY
     Route: 048
  5. HUMULIN 70/30 [Concomitant]
     Dosage: 34 UNITS IN AM 16 UNITS IN PM
     Route: 058
  6. MICARDIS [Concomitant]
     Dosage: 40 MG, 2X/DAY
     Route: 048

REACTIONS (1)
  - No adverse event [Unknown]
